FAERS Safety Report 4325883-5 (Version None)
Quarter: 2004Q1

REPORT INFORMATION
  Report Type: 
  Country: None (occurrence: None)
  Receive Date: 20040324
  Receipt Date: 20040312
  Transmission Date: 20041129
  Serious: Yes (Other)
  Sender: FDA-Public Use
  Company Number: US-JNJFOC-20040303219

PATIENT
  Age: 88 Year
  Sex: Female
  Weight: 62.5964 kg

DRUGS (13)
  1. INFLIXIMAB (INFLIXIMAB, RECOMBINANT) LYOPHILIZED POWDER [Suspect]
     Indication: RHEUMATOID ARTHRITIS
     Dosage: INTRAVENOUS
     Route: 042
     Dates: start: 20020620
  2. PREDNISONE [Concomitant]
  3. DARVOCET-N 100 [Concomitant]
  4. FOLIC ACID [Concomitant]
  5. METHOTREXATE [Concomitant]
  6. FOSAMAX [Concomitant]
  7. MIACALCIN [Concomitant]
  8. ISOSORBIDE (ISOSORBIDE) [Concomitant]
  9. LASIX [Concomitant]
  10. ASPIRIN [Concomitant]
  11. DESYREL [Concomitant]
  12. VITAMINB-12 (CYANOCOBALAMINE) [Concomitant]
  13. MULTIVITAMIN [Concomitant]

REACTIONS (1)
  - SKIN CANCER [None]
